FAERS Safety Report 6462568-3 (Version None)
Quarter: 2009Q4

REPORT INFORMATION
  Report Type: 
  Country: None (occurrence: None)
  Receive Date: 20091130
  Receipt Date: 20091118
  Transmission Date: 20100525
  Serious: Yes (Other)
  Sender: FDA-Public Use
  Company Number: FR-ASTRAZENECA-2009SE20005

PATIENT
  Age: 79 Year
  Sex: Female
  Weight: 60 kg

DRUGS (8)
  1. ARIMIDEX [Suspect]
     Indication: BREAST CANCER
     Route: 048
     Dates: start: 20090201
  2. ARIMIDEX [Suspect]
     Route: 048
     Dates: end: 20091001
  3. ART 50 [Concomitant]
     Route: 065
  4. PIASCLEDINE [Concomitant]
     Route: 065
  5. STILNOX [Concomitant]
     Route: 065
  6. PARACETAMOL [Concomitant]
     Route: 065
  7. DAFLON [Concomitant]
     Route: 065
  8. UNSPECIFIED ANTIINFLAMMATORY DRUGS [Concomitant]
     Route: 065

REACTIONS (9)
  - ANXIETY [None]
  - ARTHRALGIA [None]
  - DECREASED APPETITE [None]
  - DEPRESSION [None]
  - DRUG DOSE OMISSION [None]
  - INTENTIONAL DRUG MISUSE [None]
  - MYALGIA [None]
  - NAUSEA [None]
  - PANIC DISORDER [None]
